FAERS Safety Report 16540465 (Version 1)
Quarter: 2019Q3

REPORT INFORMATION
  Report Type: Spontaneous
  Country: PL (occurrence: PL)
  Receive Date: 20190708
  Receipt Date: 20190708
  Transmission Date: 20191004
  Serious: Yes (Other)
  Sender: FDA-Public Use
  Company Number: PL-PFIZER INC-2019277800

PATIENT
  Age: 10 Year
  Sex: Male

DRUGS (7)
  1. PREDNISONE. [Suspect]
     Active Substance: PREDNISONE
     Dosage: 5 MG, (5 MG/48H)
  2. PREDNISONE. [Suspect]
     Active Substance: PREDNISONE
     Dosage: 15-28 MG/48H
  3. RITUXIMAB. [Concomitant]
     Active Substance: RITUXIMAB
     Indication: NEPHROTIC SYNDROME
     Dosage: UNK
  4. TACROLIMUS. [Concomitant]
     Active Substance: TACROLIMUS
     Indication: NEPHROTIC SYNDROME
     Dosage: UNK
  5. METHYLPREDNISOLONE. [Suspect]
     Active Substance: METHYLPREDNISOLONE
     Indication: NEPHROTIC SYNDROME
     Dosage: UNK
  6. CYCLOSPORIN A [Concomitant]
     Active Substance: CYCLOSPORINE
     Indication: NEPHROTIC SYNDROME
     Dosage: UNK
  7. PREDNISONE. [Suspect]
     Active Substance: PREDNISONE
     Indication: NEPHROTIC SYNDROME
     Dosage: 60 MG/M2, UNK

REACTIONS (8)
  - Gastrooesophageal reflux disease [Unknown]
  - Body height below normal [Unknown]
  - Respiratory tract infection [Unknown]
  - Osteopenia [Unknown]
  - Overweight [Unknown]
  - Cataract [Unknown]
  - Idiopathic intracranial hypertension [Unknown]
  - Hypertension [Unknown]
